FAERS Safety Report 5325790-5 (Version None)
Quarter: 2007Q2

REPORT INFORMATION
  Report Type: 
  Country: None (occurrence: None)
  Receive Date: 20070510
  Receipt Date: 20070426
  Transmission Date: 20071010
  Serious: Yes (Other)
  Sender: FDA-Public Use
  Company Number: 155861ISR

PATIENT
  Age: 68 Year
  Sex: Male

DRUGS (2)
  1. DILTIAZEM [Suspect]
     Indication: ANGINA PECTORIS
     Dosage: 180 MG ORAL
     Route: 048
     Dates: start: 19970101, end: 20060701
  2. DILTIAZEM [Suspect]
     Indication: HYPERTENSION
     Dosage: 180 MG ORAL
     Route: 048
     Dates: start: 19970101, end: 20060701

REACTIONS (1)
  - LYMPHOID TISSUE HYPERPLASIA [None]
